FAERS Safety Report 7997621-6 (Version None)
Quarter: 2011Q4

REPORT INFORMATION
  Report Type: 
  Country: None (occurrence: None)
  Receive Date: 20111221
  Receipt Date: 20111216
  Transmission Date: 20120403
  Serious: Yes (Other)
  Sender: FDA-Public Use
  Company Number: US-ROCHE-1023047

PATIENT
  Age: 51 Year
  Sex: Female

DRUGS (10)
  1. HERCEPTIN [Suspect]
     Dates: start: 20100801, end: 20110714
  2. PACLITAXEL [Suspect]
     Indication: BREAST CANCER
     Dates: start: 20080612, end: 20081201
  3. CALCIUM CARBONATE [Concomitant]
     Dates: start: 20110721
  4. HERCEPTIN [Suspect]
     Indication: BREAST CANCER
     Dosage: LAST PROTOCOL TREATMENT DATE: 15 DEC 2011
     Dates: start: 20080612, end: 20100630
  5. HERCEPTIN [Suspect]
     Dosage: CYCLE 7
     Dates: start: 20111125
  6. PACLITAXEL [Suspect]
     Dates: start: 20100801, end: 20110701
  7. PERTUZUMAB [Suspect]
     Dosage: CYCLE 7
     Dates: start: 20111125
  8. HERCEPTIN [Suspect]
     Dosage: PROTOCOL THERAPY
     Dates: start: 20110721
  9. PERTUZUMAB [Suspect]
     Indication: BREAST CANCER
     Dates: start: 20110721
  10. PACLITAXEL [Suspect]
     Dates: start: 20110721

REACTIONS (2)
  - VISION BLURRED [None]
  - BLINDNESS [None]
